FAERS Safety Report 4272902-0 (Version None)
Quarter: 2004Q1

REPORT INFORMATION
  Report Type: 
  Country: None (occurrence: None)
  Receive Date: 20040114
  Receipt Date: 20031230
  Transmission Date: 20041129
  Serious: Yes (Life-Threatening)
  Sender: FDA-Public Use
  Company Number: 203989

PATIENT
  Age: 49 Year
  Sex: Female
  Weight: 123.4 kg

DRUGS (19)
  1. XOLAIR [Suspect]
     Indication: ASTHMA
     Dosage: 300 MG, SUBCUTANEOUS
     Route: 058
     Dates: start: 20031223
  2. TESSALON [Concomitant]
  3. DUONEB (ALBUTEROL SULFATE, ALBUTEROL, IPRATROPIUM BROMIDE) [Concomitant]
  4. IBUPROFEN [Concomitant]
  5. VERAPAMIL (VERAPAMIL HYDROCHLORIED) [Concomitant]
  6. PLUMICORT (BUDESONIDE) [Concomitant]
  7. FLEXERIL (CYCLOBENZAPARINE HYDROCHLORIDE) [Concomitant]
  8. DARVOCET (PROPOXYPHENE NAPSYLATE, ACETAMINOPHEN) [Concomitant]
  9. LOMUDAL (CROMOLYN SODIUM) [Concomitant]
  10. DEPAKOTE [Concomitant]
  11. CLOZAPINE [Concomitant]
  12. ZYRTEC [Concomitant]
  13. DETROL [Concomitant]
  14. SINGULAIR [Concomitant]
  15. ADVAIR DISKUS [Concomitant]
  16. VISTARIL [Concomitant]
  17. PROZAC [Concomitant]
  18. WELLBUTRIN [Concomitant]
  19. PREDNISONE [Concomitant]

REACTIONS (5)
  - ANGIONEUROTIC OEDEMA [None]
  - BRONCHOSPASM [None]
  - HYPERTENSION [None]
  - HYPOTENSION [None]
  - LOCAL SWELLING [None]
